FAERS Safety Report 4588432-2 (Version None)
Quarter: 2005Q1

REPORT INFORMATION
  Report Type: 
  Country: None (occurrence: None)
  Receive Date: 20050215
  Receipt Date: 20050215
  Transmission Date: 20050727
  Serious: Yes (Hospitalization)
  Sender: FDA-Public Use
  Company Number: None

PATIENT
  Age: 83 Year
  Sex: Female

DRUGS (1)
  1. ZOCOR [Suspect]
     Dosage: 1 TABLET QD ORAL
     Route: 048

REACTIONS (1)
  - RHABDOMYOLYSIS [None]
